FAERS Safety Report 7934192-4 (Version None)
Quarter: 2011Q4

REPORT INFORMATION
  Report Type: 
  Country: None (occurrence: None)
  Receive Date: 20111122
  Receipt Date: 20111117
  Transmission Date: 20120403
  Serious: Yes (Other)
  Sender: FDA-Public Use
  Company Number: TW-JNJFOC-20111108226

PATIENT
  Age: 40 Year
  Sex: Male

DRUGS (1)
  1. NICORETTE (MINT) [Suspect]
     Indication: SMOKING CESSATION THERAPY
     Dosage: CHEWED 3-6 GUMS PER DAY FOR 2-3 HOURS EACH TIME.
     Route: 048
     Dates: start: 20110101

REACTIONS (2)
  - AGEUSIA [None]
  - DRUG DEPENDENCE [None]
